FAERS Safety Report 14907696 (Version 1)
Quarter: 2018Q2

REPORT INFORMATION
  Report Type: Spontaneous
  Country: US (occurrence: US)
  Receive Date: 20180429
  Receipt Date: 20180429
  Transmission Date: 20180711
  Serious: Yes (Life-Threatening, Hospitalization)
  Sender: FDA-Public Use
  Company Number: None

PATIENT
  Age: 30 Year
  Sex: Male
  Weight: 79.38 kg

DRUGS (1)
  1. MRI WITH GADOLINIUM CONTRAST [Suspect]
     Active Substance: GADOLINIUM

REACTIONS (6)
  - Oral pruritus [None]
  - Urticaria [None]
  - Burning sensation [None]
  - Rash generalised [None]
  - Contrast media reaction [None]
  - Erythema [None]

NARRATIVE: CASE EVENT DATE: 20180426
